FAERS Safety Report 5528390-7 (Version None)
Quarter: 2007Q4

REPORT INFORMATION
  Report Type: 
  Country: None (occurrence: None)
  Receive Date: 20071128
  Receipt Date: 20071119
  Transmission Date: 20080405
  Serious: Yes (Other)
  Sender: FDA-Public Use
  Company Number: US-SANOFI-SYNTHELABO-A03200706608

PATIENT
  Sex: Female

DRUGS (6)
  1. INVESTIGATIONAL DRUG [Concomitant]
     Dosage: UNK
     Route: 065
     Dates: end: 20071101
  2. TYLENOL [Concomitant]
     Indication: PAIN
     Dosage: 1000MG BID, PRN
     Route: 065
  3. BENADRYL [Concomitant]
     Indication: SLEEP DISORDER
     Route: 065
  4. VITAMIN CAP [Concomitant]
     Indication: DRUG USE FOR UNKNOWN INDICATION
     Dosage: UNK
     Route: 065
  5. PROTONIX [Concomitant]
     Indication: DRUG USE FOR UNKNOWN INDICATION
     Route: 065
  6. AMBIEN [Suspect]
     Indication: INSOMNIA
     Route: 048
     Dates: start: 20071114, end: 20071114

REACTIONS (2)
  - FALL [None]
  - GRAND MAL CONVULSION [None]
